FAERS Safety Report 5405149-2 (Version None)
Quarter: 2007Q3

REPORT INFORMATION
  Report Type: 
  Country: None (occurrence: None)
  Receive Date: 20070803
  Receipt Date: 20070730
  Transmission Date: 20080115
  Serious: Yes (Other)
  Sender: FDA-Public Use
  Company Number: US-SANOFI-SYNTHELABO-A03200704891

PATIENT
  Age: 85 Year
  Sex: Female

DRUGS (9)
  1. PLAVIX [Suspect]
     Indication: TRANSIENT ISCHAEMIC ATTACK
     Route: 048
     Dates: start: 20040101, end: 20060901
  2. CENTRUM SILVER [Concomitant]
     Dosage: UNK
     Route: 048
  3. ZOLOFT [Concomitant]
     Route: 048
     Dates: start: 20060101
  4. LIPITOR [Concomitant]
     Route: 048
  5. ENALAPRIL MALEATE [Concomitant]
     Route: 048
  6. NIFEDIPINE [Concomitant]
     Route: 048
  7. TOPROL-XL [Concomitant]
     Route: 048
  8. TRIAMTERENE AND HYDROCHLOROTHIAZIDE [Concomitant]
     Dosage: UNK
     Route: 048
  9. ASPIRIN [Concomitant]
     Route: 048

REACTIONS (1)
  - MACULAR DEGENERATION [None]
